FAERS Safety Report 6091706-X (Version None)
Quarter: 2009Q1

REPORT INFORMATION
  Report Type: 
  Country: None (occurrence: None)
  Receive Date: 20090225
  Receipt Date: 20080508
  Transmission Date: 20090719
  Serious: No
  Sender: FDA-Public Use
  Company Number: A0723878A

PATIENT
  Age: 21 Year
  Sex: Male

DRUGS (3)
  1. VALTREX [Suspect]
     Indication: GENITAL HERPES
     Dosage: 1G THREE TIMES PER DAY
     Route: 048
     Dates: start: 20080417, end: 20080418
  2. UNKNOWN MEDICATION [Concomitant]
  3. HERB MEDICATION [Concomitant]

REACTIONS (3)
  - ANOREXIA [None]
  - NAUSEA [None]
  - VOMITING [None]
